FAERS Safety Report 25203945 (Version 1)
Quarter: 2025Q2

REPORT INFORMATION
  Report Type: Spontaneous
  Country: US (occurrence: US)
  Receive Date: 20250416
  Receipt Date: 20250416
  Transmission Date: 20250717
  Serious: Yes (Hospitalization)
  Sender: LUNDBECK
  Company Number: US-LUNDBECK-DKLU4013270

PATIENT
  Age: 11 Year
  Sex: Female

DRUGS (2)
  1. SABRIL [Suspect]
     Active Substance: VIGABATRIN
     Indication: Infantile spasms
     Dosage: 15 MILLILITRE
     Route: 048
     Dates: start: 201705
  2. SABRIL [Suspect]
     Active Substance: VIGABATRIN
     Dosage: 20 MILLILITRE
     Route: 048
     Dates: start: 201705

REACTIONS (1)
  - Seizure [Unknown]

NARRATIVE: CASE EVENT DATE: 20250111
